FAERS Safety Report 7971943-7 (Version None)
Quarter: 2011Q4

REPORT INFORMATION
  Report Type: 
  Country: None (occurrence: None)
  Receive Date: 20111212
  Receipt Date: 20111202
  Transmission Date: 20120403
  Serious: Yes (Disabling)
  Sender: FDA-Public Use
  Company Number: FR-BRISTOL-MYERS SQUIBB COMPANY-16272387

PATIENT
  Age: 79 Year
  Sex: Male

DRUGS (7)
  1. PERINDOPRIL ERBUMINE [Concomitant]
  2. STABLON [Concomitant]
  3. INNOHEP [Suspect]
     Indication: VENOUS THROMBOSIS
     Dosage: EVENING FOR 4 MONTHS
     Route: 058
     Dates: start: 20110501, end: 20110924
  4. INDAPAMIDE [Concomitant]
  5. TOPIRAMATE [Concomitant]
  6. CRESTOR [Concomitant]
  7. COUMADIN [Suspect]
     Indication: VENOUS THROMBOSIS
     Dosage: 1 DOSAGE FORM = 2 SCORED TABLETS
     Route: 048
     Dates: end: 20110924

REACTIONS (4)
  - CEREBRAL HAEMATOMA [None]
  - HEMIPARESIS [None]
  - HEMISENSORY NEGLECT [None]
  - HEMIANOPIA HOMONYMOUS [None]
